FAERS Safety Report 21109694 (Version 1)
Quarter: 2022Q3

REPORT INFORMATION
  Report Type: Spontaneous
  Country: GB (occurrence: GB)
  Receive Date: 20220721
  Receipt Date: 20220721
  Transmission Date: 20221027
  Serious: Yes (Hospitalization, Other)
  Sender: FDA-Public Use
  Company Number: GB-NOVARTISPH-NVSC2022GB017294

PATIENT
  Age: 43 Year
  Sex: Female

DRUGS (28)
  1. DOCETAXEL [Suspect]
     Active Substance: DOCETAXEL
     Indication: Breast cancer metastatic
     Dosage: 148 MG, EVERY 3 WEEKS
     Route: 042
     Dates: start: 20171108, end: 20180131
  2. TRASTUZUMAB [Suspect]
     Active Substance: TRASTUZUMAB
     Indication: Breast cancer metastatic
     Dosage: 882 MG, EVERY 3 WEEKS
     Route: 042
     Dates: start: 20171108, end: 20171129
  3. TRASTUZUMAB [Suspect]
     Active Substance: TRASTUZUMAB
     Dosage: 651 MG, EVERY 3 WEEKS
     Route: 042
     Dates: start: 20171129, end: 20210903
  4. PERTUZUMAB [Suspect]
     Active Substance: PERTUZUMAB
     Indication: Breast cancer metastatic
     Dosage: 840 MG, EVERY 3 WEEKS
     Route: 042
     Dates: start: 20171108, end: 20171129
  5. PERTUZUMAB [Suspect]
     Active Substance: PERTUZUMAB
     Dosage: 420 MG, EVERY 3 WEEKS
     Route: 042
     Dates: start: 20171129, end: 20210924
  6. PERTUZUMAB [Suspect]
     Active Substance: PERTUZUMAB
     Dosage: 840 MG, EVERY 3 WEEKS
     Route: 042
     Dates: start: 20181120
  7. CALCIUM CARBONATE [Concomitant]
     Active Substance: CALCIUM CARBONATE
     Indication: Product used for unknown indication
     Dosage: 1 DOSAGE FORM, BID (1,5G + 400 UNITS)
     Route: 048
  8. BECLOMETHASONE DIPROPIONATE [Concomitant]
     Active Substance: BECLOMETHASONE DIPROPIONATE
     Indication: Product used for unknown indication
     Dosage: 1 DOSAGE FORM (1,5G + 400 UNITS)
     Route: 065
  9. BECLOMETHASONE DIPROPIONATE [Concomitant]
     Active Substance: BECLOMETHASONE DIPROPIONATE
     Dosage: 2 PUFF, BID
     Route: 065
  10. CLONAZEPAM [Concomitant]
     Active Substance: CLONAZEPAM
     Indication: Product used for unknown indication
     Dosage: 250 MG, QD
     Route: 048
     Dates: start: 202006
  11. LACTULOSE [Concomitant]
     Active Substance: LACTULOSE
     Indication: Product used for unknown indication
     Dosage: 10 ML, BID
     Route: 048
  12. METFORMIN [Concomitant]
     Active Substance: METFORMIN HYDROCHLORIDE
     Indication: Product used for unknown indication
     Dosage: 1000 MG, QD
     Route: 065
  13. MIRTAZAPINE [Concomitant]
     Active Substance: MIRTAZAPINE
     Indication: Product used for unknown indication
     Dosage: 45 MG, QD
     Route: 048
  14. MORPHINE [Concomitant]
     Active Substance: MORPHINE
     Indication: Vomiting
     Dosage: 5 MG
     Route: 042
     Dates: start: 20181002, end: 20181002
  15. MORPHINE [Concomitant]
     Active Substance: MORPHINE
     Indication: Diarrhoea
  16. NITROFURANTOIN [Concomitant]
     Active Substance: NITROFURANTOIN
     Indication: Urinary tract infection
     Dosage: 50 MG, QID
     Route: 048
     Dates: start: 20181103, end: 20181109
  17. OMEPRAZOLE [Concomitant]
     Active Substance: OMEPRAZOLE
     Indication: Product used for unknown indication
     Dosage: 40 MG, QD
     Route: 048
     Dates: start: 201710
  18. ONDANSETRON [Concomitant]
     Active Substance: ONDANSETRON
     Indication: Diarrhoea
     Dosage: 4 MG
     Route: 042
     Dates: start: 20181002, end: 20181002
  19. ONDANSETRON [Concomitant]
     Active Substance: ONDANSETRON
     Indication: Vomiting
  20. OXYCODONE [Concomitant]
     Active Substance: OXYCODONE
     Indication: Pain
     Dosage: 110 MG, BID
     Route: 048
  21. QUETIAPINE [Concomitant]
     Active Substance: QUETIAPINE
     Indication: Depressed mood
     Dosage: 150 MG, QD
     Route: 048
     Dates: start: 2020
  22. QUETIAPINE [Concomitant]
     Active Substance: QUETIAPINE
     Dosage: 100 MG, QD
     Route: 048
     Dates: end: 2020
  23. RAMIPRIL [Concomitant]
     Active Substance: RAMIPRIL
     Indication: Product used for unknown indication
     Dosage: 1.25 MG, QD
     Route: 048
  24. ALBUTEROL [Concomitant]
     Active Substance: ALBUTEROL
     Indication: Product used for unknown indication
     Dosage: 2 PUFF, QD (PRN)
     Route: 065
  25. SIMVASTATIN [Concomitant]
     Active Substance: SIMVASTATIN
     Indication: Product used for unknown indication
     Dosage: 40 MG, QD
     Route: 048
  26. SODIUM PICOSULFATE [Concomitant]
     Active Substance: SODIUM PICOSULFATE
     Indication: Constipation
     Dosage: UNK, QD (10 OTHER)
     Route: 048
  27. BECLOMETASONE DIPROPIONATE MONOHYDRATE [Concomitant]
     Indication: Product used for unknown indication
     Dosage: 3 MG
     Route: 048
     Dates: start: 202006
  28. PREDNISOLONE [Concomitant]
     Active Substance: PREDNISOLONE
     Indication: Product used for unknown indication
     Dosage: 30 MG (FOR 5 DAYS)
     Route: 065

REACTIONS (5)
  - COVID-19 [Recovered/Resolved with Sequelae]
  - Appendicitis [Recovered/Resolved]
  - Abdominal pain [Recovered/Resolved]
  - Asthma [Recovered/Resolved]
  - Vascular device infection [Recovered/Resolved]

NARRATIVE: CASE EVENT DATE: 20211028
